FAERS Safety Report 21638542 (Version 1)
Quarter: 2022Q4

REPORT INFORMATION
  Report Type: Spontaneous
  Country: CN (occurrence: None)
  Receive Date: 20221124
  Receipt Date: 20221124
  Transmission Date: 20230113
  Serious: Yes (Hospitalization)
  Sender: FDA-Public Use
  Company Number: CN-Merck Healthcare KGaA-9366929

PATIENT
  Age: 34 Year
  Sex: Female
  Weight: 66 kg

DRUGS (7)
  1. LUVERIS [Suspect]
     Active Substance: LUTROPIN ALFA
     Indication: Infertility female
     Route: 058
     Dates: start: 20221011, end: 20221021
  2. OVIDREL [Suspect]
     Active Substance: CHORIOGONADOTROPIN ALFA
     Indication: Infertility female
     Route: 058
     Dates: start: 20221021, end: 20221021
  3. GONAL-F [Suspect]
     Active Substance: FOLLITROPIN
     Indication: Infertility female
     Route: 058
     Dates: start: 20221011, end: 20221018
  4. CRINONE [Suspect]
     Active Substance: PROGESTERONE
     Indication: Luteal phase deficiency
     Route: 067
     Dates: start: 20221023, end: 20221103
  5. MENOTROPINS [Suspect]
     Active Substance: MENOTROPINS
     Indication: Infertility female
     Dosage: DOSE 37.5 U
     Route: 030
     Dates: start: 20221008, end: 20221008
  6. DUPHASTON [Suspect]
     Active Substance: DYDROGESTERONE
     Indication: Infertility female
     Route: 048
     Dates: start: 20221023, end: 20221103
  7. UROFOLLITROPIN [Concomitant]
     Active Substance: UROFOLLITROPIN
     Indication: Infertility female
     Route: 030

REACTIONS (1)
  - Ovarian hyperstimulation syndrome [Recovering/Resolving]

NARRATIVE: CASE EVENT DATE: 20221104
